FAERS Safety Report 11912937 (Version 2)
Quarter: 2016Q1

REPORT INFORMATION
  Report Type: Report from Study
  Country: US (occurrence: US)
  Receive Date: 20160113
  Receipt Date: 20160222
  Transmission Date: 20160526
  Serious: No
  Sender: FDA-Public Use
  Company Number: US-ELI_LILLY_AND_COMPANY-US201601001243

PATIENT
  Age: 81 Year
  Sex: Female

DRUGS (12)
  1. COPD [Concomitant]
  2. OSTEO-BI-FLEX [Concomitant]
  3. DIOVAN [Concomitant]
     Active Substance: VALSARTAN
     Dosage: 80 MG, UNKNOWN
     Route: 065
  4. LIPITOR [Concomitant]
     Active Substance: ATORVASTATIN CALCIUM
     Dosage: 20 MG, UNKNOWN
     Route: 065
  5. VITAMIN D [Concomitant]
     Active Substance: CHOLECALCIFEROL
  6. HYDROCHLOROTHIAZIDE. [Concomitant]
     Active Substance: HYDROCHLOROTHIAZIDE
  7. MULTI VITAMIN [Concomitant]
     Active Substance: VITAMINS
  8. FORTEO [Suspect]
     Active Substance: TERIPARATIDE
     Dosage: UNK, QD
     Route: 065
     Dates: start: 20151029
  9. FISH OIL [Concomitant]
     Active Substance: FISH OIL
  10. BONIVA [Concomitant]
     Active Substance: IBANDRONATE SODIUM
  11. CELEBREX [Concomitant]
     Active Substance: CELECOXIB
     Dosage: 200 MG, UNKNOWN
     Route: 065
  12. FORTEO [Suspect]
     Active Substance: TERIPARATIDE
     Dosage: 20 UNK, UNKNOWN
     Route: 058

REACTIONS (3)
  - Burning sensation [Unknown]
  - Pain [Not Recovered/Not Resolved]
  - Pain in extremity [Unknown]

NARRATIVE: CASE EVENT DATE: 20150901
